FAERS Safety Report 8300548-3 (Version None)
Quarter: 2012Q2

REPORT INFORMATION
  Report Type: 
  Country: None (occurrence: None)
  Receive Date: 20120420
  Receipt Date: 20120406
  Transmission Date: 20120825
  Serious: Yes (Hospitalization)
  Sender: FDA-Public Use
  Company Number: DE-MYLANLABS-2012S1004656

PATIENT
  Age: 2 Year
  Sex: Male
  Weight: 14 kg

DRUGS (1)
  1. PAROXETINE [Suspect]
     Dosage: UP TO 5 TABLETS
     Dates: start: 20120301

REACTIONS (2)
  - OVERDOSE [None]
  - ACCIDENTAL EXPOSURE [None]
